FAERS Safety Report 14230429 (Version 2)
Quarter: 2018Q1

REPORT INFORMATION
  Report Type: Spontaneous
  Country: CA (occurrence: CA)
  Receive Date: 20171128
  Receipt Date: 20180212
  Transmission Date: 20180508
  Serious: Yes (Other)
  Sender: FDA-Public Use
  Company Number: CA-SA-2017SA230770

PATIENT
  Age: 57 Year
  Sex: Male
  Weight: 129 kg

DRUGS (9)
  1. METFORMIN [Concomitant]
     Active Substance: METFORMIN HYDROCHLORIDE
  2. ASPIRIN. [Concomitant]
     Active Substance: ASPIRIN
  3. IRBESARTAN. [Concomitant]
     Active Substance: IRBESARTAN
  4. LIPITOR [Concomitant]
     Active Substance: ATORVASTATIN CALCIUM
  5. TOUJEO [Suspect]
     Active Substance: INSULIN GLARGINE
     Indication: DIABETES MELLITUS
     Dosage: DOSE:60 UNIT(S)
     Route: 058
     Dates: start: 20160415, end: 20160927
  6. SOLOSTAR [Suspect]
     Active Substance: DEVICE
     Indication: DIABETES MELLITUS
  7. VICTOZA [Concomitant]
     Active Substance: LIRAGLUTIDE
     Dosage: PREFILLED?PEN-INJECTOR. 15?DOSES(1.2MG).?30DOSES(0.6MG). 1 OR 2?PENS
     Route: 058
  8. EMPRACET [Concomitant]
  9. VITAMIN B12 [Concomitant]
     Active Substance: CYANOCOBALAMIN

REACTIONS (4)
  - Blood glucose fluctuation [Recovered/Resolved]
  - Hyperhidrosis [Recovered/Resolved]
  - Hunger [Recovered/Resolved]
  - Nightmare [Recovered/Resolved]

NARRATIVE: CASE EVENT DATE: 201605
